FAERS Safety Report 10055638 (Version 1)
Quarter: 2014Q2

REPORT INFORMATION
  Report Type: Spontaneous
  Country: US (occurrence: None)
  Receive Date: 20140402
  Receipt Date: 20140402
  Transmission Date: 20141212
  Serious: Yes (Other)
  Sender: FDA-Public Use
  Company Number: None

PATIENT
  Age: 38 Year
  Sex: Male
  Weight: 61.69 kg

DRUGS (3)
  1. CIPROFLOXACIN 500 MG [Suspect]
     Indication: BACTERIAL INFECTION
     Dosage: 1 PILL TWICE DAILY TAKEN BY MOUTH
     Route: 048
     Dates: start: 20140220, end: 20140227
  2. CIPROFLOXACIN 500 MG [Suspect]
     Indication: STAPHYLOCOCCAL INFECTION
     Dosage: 1 PILL TWICE DAILY TAKEN BY MOUTH
     Route: 048
     Dates: start: 20140220, end: 20140227
  3. CIPROFLOXACIN 500 MG [Suspect]
     Indication: LOCALISED INFECTION
     Dosage: 1 PILL TWICE DAILY TAKEN BY MOUTH
     Route: 048
     Dates: start: 20140220, end: 20140227

REACTIONS (2)
  - Drug ineffective [None]
  - Arthralgia [None]
